FAERS Safety Report 9649958 (Version 1)
Quarter: 2013Q4

REPORT INFORMATION
  Report Type: Spontaneous
  Country: US (occurrence: US)
  Receive Date: 20131028
  Receipt Date: 20131028
  Transmission Date: 20140711
  Serious: No
  Sender: FDA-Public Use
  Company Number: US-PURDUE-USA-2013-0100049

PATIENT
  Age: 54 Year
  Sex: Male

DRUGS (2)
  1. OXYCONTIN (NDA 22-272) [Suspect]
     Indication: PAIN
     Dosage: 80 MG, DAILY
     Route: 048
     Dates: end: 20130318
  2. PERCOCET /00867901/ [Suspect]
     Indication: PAIN
     Dosage: 10 MG, TID
     Route: 048
     Dates: end: 20130318

REACTIONS (4)
  - Wrong technique in drug usage process [Unknown]
  - Intentional drug misuse [Unknown]
  - Pain [Unknown]
  - Tremor [Unknown]
